FAERS Safety Report 5694862-8 (Version None)
Quarter: 2008Q2

REPORT INFORMATION
  Report Type: 
  Country: None (occurrence: None)
  Receive Date: 20080404
  Receipt Date: 20071228
  Transmission Date: 20081010
  Serious: No
  Sender: FDA-Public Use
  Company Number: A0700757A

PATIENT
  Age: 70 Year
  Sex: Female

DRUGS (4)
  1. ADVAIR HFA [Suspect]
     Indication: ASTHMA
     Route: 055
     Dates: start: 20071101
  2. ADVAIR HFA [Suspect]
     Route: 055
     Dates: start: 20050101, end: 20071101
  3. SINGULAIR [Concomitant]
  4. TRICOR [Concomitant]

REACTIONS (6)
  - APHONIA [None]
  - COUGH [None]
  - DYSPHONIA [None]
  - LARYNGITIS [None]
  - MUSCULOSKELETAL CHEST PAIN [None]
  - SPEECH DISORDER [None]
